FAERS Safety Report 4015854 (Version 4)
Quarter: 2020Q1

REPORT INFORMATION
  Report Type: Spontaneous
  Country: DE (occurrence: DE)
  Receive Date: 20031001
  Receipt Date: 20200220
  Transmission Date: 20200409
  Serious: Yes (Other)
  Sender: FDA-Public Use
  Company Number: DE-ROCHE-347814

PATIENT
  Age: 22 Year
  Sex: Female
  Weight: 66.5 kg

DRUGS (1)
  1. CELLCEPT [Suspect]
     Active Substance: MYCOPHENOLATE MOFETIL\MYCOPHENOLATE MOFETIL HYDROCHLORIDE
     Indication: SYSTEMIC LUPUS ERYTHEMATOSUS
     Dosage: NO REGIMEN PROVIDED.
     Route: 048
     Dates: start: 200101, end: 200306

REACTIONS (1)
  - Abortion spontaneous [Unknown]
